FAERS Safety Report 6608356-6 (Version None)
Quarter: 2010Q1

REPORT INFORMATION
  Report Type: 
  Country: None (occurrence: None)
  Receive Date: 20100301
  Receipt Date: 20100222
  Transmission Date: 20100710
  Serious: Yes (Hospitalization)
  Sender: FDA-Public Use
  Company Number: KR-JNJFOC-20100200447

PATIENT
  Age: 21 Year
  Sex: Male

DRUGS (5)
  1. REMICADE [Suspect]
     Indication: CROHN'S DISEASE
     Route: 042
  2. REMICADE [Suspect]
     Route: 042
  3. AZATHIOPRINE [Concomitant]
     Indication: CROHN'S DISEASE
  4. PENTASA [Concomitant]
     Indication: CROHN'S DISEASE
  5. PREDNISOLONE [Concomitant]
     Indication: CROHN'S DISEASE

REACTIONS (3)
  - ESCHERICHIA INFECTION [None]
  - GASTROINTESTINAL FISTULA [None]
  - MUSCLE ABSCESS [None]
